FAERS Safety Report 7897746-X (Version None)
Quarter: 2011Q4

REPORT INFORMATION
  Report Type: 
  Country: None (occurrence: None)
  Receive Date: 20111107
  Receipt Date: 20110921
  Transmission Date: 20120403
  Serious: Yes (Death, Hospitalization)
  Sender: FDA-Public Use
  Company Number: US-ROCHE-797262

PATIENT
  Age: 50 Year
  Sex: Female

DRUGS (10)
  1. OMEPRAZOLE [Concomitant]
  2. ACYCLOVIR [Concomitant]
  3. HYDROCHLOROTHIAZIDE [Concomitant]
  4. WELLBUTRIN [Concomitant]
  5. LEXAPRO [Concomitant]
  6. LYRICA [Concomitant]
  7. LISINOPRIL [Concomitant]
  8. AVASTIN [Suspect]
     Indication: COLORECTAL CANCER
     Route: 042
  9. AVASTIN [Suspect]
     Dosage: LAST DOSE OF AVASTIN ON 3 JULY 2011
     Route: 042
  10. AMITRIPTYLINE HCL [Concomitant]

REACTIONS (4)
  - DUODENAL ULCER PERFORATION [None]
  - ABDOMINAL PAIN [None]
  - SEPSIS [None]
  - RENAL FAILURE [None]
